FAERS Safety Report 18715516 (Version 3)
Quarter: 2021Q1

REPORT INFORMATION
  Report Type: Report from Study
  Country: None (occurrence: US)
  Receive Date: 20210108
  Receipt Date: 20210324
  Transmission Date: 20210419
  Serious: Yes (Other)
  Sender: FDA-Public Use
  Company Number: US-ABBVIE-21K-163-3719159-00

PATIENT
  Sex: Female

DRUGS (3)
  1. HUMIRA [Suspect]
     Active Substance: ADALIMUMAB
     Indication: CROHN^S DISEASE
     Dosage: DAY 1
     Route: 058
     Dates: start: 20201022, end: 20201022
  2. HUMIRA [Suspect]
     Active Substance: ADALIMUMAB
     Dosage: DAY 29
     Route: 058
     Dates: start: 20201119
  3. HUMIRA [Suspect]
     Active Substance: ADALIMUMAB
     Dosage: DAY 15
     Route: 058
     Dates: start: 20201105, end: 20201105

REACTIONS (7)
  - Malaise [Recovered/Resolved]
  - Faeces hard [Unknown]
  - Abdominal pain [Unknown]
  - Seizure [Recovered/Resolved]
  - Seizure [Not Recovered/Not Resolved]
  - Pain [Unknown]
  - Diarrhoea [Recovering/Resolving]

NARRATIVE: CASE EVENT DATE: 2020
